FAERS Safety Report 18220072 (Version 1)
Quarter: 2020Q3

REPORT INFORMATION
  Report Type: Spontaneous
  Country: US (occurrence: US)
  Receive Date: 20200902
  Receipt Date: 20200902
  Transmission Date: 20201103
  Serious: No
  Sender: FDA-Public Use
  Company Number: US-ALVOGEN-2019-ALVOGEN-101954

PATIENT
  Sex: Female

DRUGS (1)
  1. METHENAMINE HIPPURATE. [Suspect]
     Active Substance: METHENAMINE HIPPURATE
     Indication: PRODUCT USED FOR UNKNOWN INDICATION
     Route: 048

REACTIONS (1)
  - Diarrhoea [Unknown]
